FAERS Safety Report 25622145 (Version 1)
Quarter: 2025Q3

REPORT INFORMATION
  Report Type: Spontaneous
  Country: US (occurrence: None)
  Receive Date: 20250729
  Receipt Date: 20250729
  Transmission Date: 20251020
  Serious: Yes (Hospitalization)
  Sender: FDA-CTU
  Company Number: None

PATIENT
  Age: 69 Year
  Sex: Female

DRUGS (13)
  1. DUPIXENT [Suspect]
     Active Substance: DUPILUMAB
     Indication: Dermatitis atopic
     Dosage: 300 MG/ML EVERY 2 WEEKS SUBCUTANEOUS?
     Route: 058
     Dates: start: 20240719
  2. ATORVASTATIN 80MG TABLETS [Concomitant]
  3. FERROUS SULFATE 325MG (5GR) TABS [Concomitant]
  4. FUROSEMIDE [Concomitant]
     Active Substance: FUROSEMIDE
  5. GABAPENTIN 800MG TABLETS [Concomitant]
  6. LEVOTHYROXINE 0.150MG (150MCG) TAB [Concomitant]
  7. LISINOPRIL [Concomitant]
     Active Substance: LISINOPRIL
  8. MAGNESIUM OXIDE 400MG TABLETS [Concomitant]
  9. METFORMIN HYDROCHLORIDE [Concomitant]
     Active Substance: METFORMIN HYDROCHLORIDE
  10. PANTOPRAZOLE [Concomitant]
     Active Substance: PANTOPRAZOLE
  11. VENLAFAXINE ER 225MG TABLETS [Concomitant]
  12. XARELTO [Concomitant]
     Active Substance: RIVAROXABAN
  13. TYLENOL 500MG E/S (ACETAMINOPHEN) T [Concomitant]

REACTIONS (5)
  - Inappropriate schedule of product administration [None]
  - Surgery [None]
  - Irritable bowel syndrome [None]
  - Constipation [None]
  - Intestinal obstruction [None]

NARRATIVE: CASE EVENT DATE: 20250718
